FAERS Safety Report 5646198-9 (Version None)
Quarter: 2008Q1

REPORT INFORMATION
  Report Type: 
  Country: None (occurrence: None)
  Receive Date: 20080227
  Receipt Date: 20080218
  Transmission Date: 20080703
  Serious: Yes (Hospitalization)
  Sender: FDA-Public Use
  Company Number: TH-JNJFOC-20071006902

PATIENT
  Sex: Female

DRUGS (5)
  1. DECITABINE (DECITABINE) LYOPHILIZED POWDER [Suspect]
     Indication: MYELODYSPLASTIC SYNDROME
     Dosage: 29 MG, INTRAVENOUS
     Route: 042
     Dates: start: 20070718, end: 20070722
  2. DECITABINE (DECITABINE) LYOPHILIZED POWDER [Suspect]
     Indication: MYELODYSPLASTIC SYNDROME
     Dosage: 29 MG, INTRAVENOUS
     Route: 042
     Dates: start: 20070815, end: 20070819
  3. DECITABINE (DECITABINE) LYOPHILIZED POWDER [Suspect]
     Indication: MYELODYSPLASTIC SYNDROME
     Dosage: 29 MG, INTRAVENOUS
     Route: 042
     Dates: start: 20070912, end: 20070916
  4. SODAMINT (SODIUM BICARBONATE) TABLETS [Concomitant]
  5. PREDNISOLONE [Concomitant]

REACTIONS (7)
  - COLITIS [None]
  - HAEMATOCRIT DECREASED [None]
  - HYPOTENSION [None]
  - NEUTROPENIA [None]
  - PLATELET COUNT DECREASED [None]
  - PYREXIA [None]
  - SEPTIC SHOCK [None]
